FAERS Safety Report 23167627 (Version 3)
Quarter: 2024Q1

REPORT INFORMATION
  Report Type: Spontaneous
  Country: US (occurrence: US)
  Receive Date: 20231109
  Receipt Date: 20240305
  Transmission Date: 20240410
  Serious: No
  Sender: FDA-Public Use
  Company Number: US-SA-SAC20231102000720

PATIENT
  Sex: Male
  Weight: 83 kg

DRUGS (32)
  1. DUPIXENT [Suspect]
     Active Substance: DUPILUMAB
     Indication: Dermatitis atopic
     Dosage: 300 MG, QOW
     Route: 058
     Dates: start: 2020
  2. WEGOVY [Concomitant]
     Active Substance: SEMAGLUTIDE
  3. WEGOVY [Concomitant]
     Active Substance: SEMAGLUTIDE
  4. VITAMIN B COMPLEX [Concomitant]
     Active Substance: CYANOCOBALAMIN\DEXPANTHENOL\NIACINAMIDE\PYRIDOXINE HYDROCHLORIDE\RIBOFLAVIN 5^-PHOSPHATE SODIUM\THIA
     Dosage: 100MG
  5. VITAMIN B COMPLEX [Concomitant]
     Active Substance: CYANOCOBALAMIN\DEXPANTHENOL\NIACINAMIDE\PYRIDOXINE HYDROCHLORIDE\RIBOFLAVIN 5^-PHOSPHATE SODIUM\THIA
  6. DOCUSATE SODIUM [Concomitant]
     Active Substance: DOCUSATE SODIUM
  7. DOCUSATE SODIUM [Concomitant]
     Active Substance: DOCUSATE SODIUM
  8. LUNESTA [Concomitant]
     Active Substance: ESZOPICLONE
  9. LUNESTA [Concomitant]
     Active Substance: ESZOPICLONE
  10. WELLBUTRIN [Concomitant]
     Active Substance: BUPROPION HYDROCHLORIDE
     Dosage: 300MG
  11. ALLOPURINOL [Concomitant]
     Active Substance: ALLOPURINOL
     Dosage: 300MG
  12. ALLOPURINOL [Concomitant]
     Active Substance: ALLOPURINOL
  13. NUCYNTA [Concomitant]
     Active Substance: TAPENTADOL HYDROCHLORIDE
     Dosage: 300MG
  14. NUCYNTA [Concomitant]
     Active Substance: TAPENTADOL HYDROCHLORIDE
  15. VASCEPA [Concomitant]
     Active Substance: ICOSAPENT ETHYL
     Dosage: 40MG
  16. VASCEPA [Concomitant]
     Active Substance: ICOSAPENT ETHYL
  17. PROTONIS [Concomitant]
  18. XANAX [Concomitant]
     Active Substance: ALPRAZOLAM
     Dosage: 1MG
  19. XANAX [Concomitant]
     Active Substance: ALPRAZOLAM
  20. ALUMINUM HYDROXIDE\MAGNESIUM CARBONATE [Concomitant]
     Active Substance: ALUMINUM HYDROXIDE\MAGNESIUM CARBONATE
     Dosage: 10MG
  21. CRESTOR [Concomitant]
     Active Substance: ROSUVASTATIN CALCIUM
     Dosage: 40MG
  22. CRESTOR [Concomitant]
     Active Substance: ROSUVASTATIN CALCIUM
  23. KETOROLAC TROMETHAMINE [Concomitant]
     Active Substance: KETOROLAC TROMETHAMINE
     Dosage: 04MG
  24. KETOROLAC TROMETHAMINE [Concomitant]
     Active Substance: KETOROLAC TROMETHAMINE
  25. TAMSULOSIN HYDROCHLORIDE [Concomitant]
     Active Substance: TAMSULOSIN HYDROCHLORIDE
     Dosage: 10MG
  26. VITAMINS [Concomitant]
     Active Substance: VITAMINS
  27. VITAMINS [Concomitant]
     Active Substance: VITAMINS
  28. XANAX [Concomitant]
     Active Substance: ALPRAZOLAM
  29. XANAX [Concomitant]
     Active Substance: ALPRAZOLAM
  30. TART CHERRY [Concomitant]
  31. TART CHERRY [Concomitant]
  32. WELLBUTRIN XL [Concomitant]
     Active Substance: BUPROPION HYDROCHLORIDE

REACTIONS (4)
  - Anxiety [Unknown]
  - Dry skin [Unknown]
  - Skin fissures [Unknown]
  - Therapeutic response shortened [Unknown]
